FAERS Safety Report 25395326 (Version 1)
Quarter: 2025Q2

REPORT INFORMATION
  Report Type: Spontaneous
  Country: US (occurrence: US)
  Receive Date: 20250604
  Receipt Date: 20250604
  Transmission Date: 20250717
  Serious: No
  Sender: MILLICENT HOLDINGS
  Company Number: US-Millicent Holdings Ltd.-MILL20250249

PATIENT
  Sex: Female

DRUGS (1)
  1. INTRAROSA [Suspect]
     Active Substance: PRASTERONE
     Indication: Product used for unknown indication
     Route: 067

REACTIONS (2)
  - Vaginal haemorrhage [Unknown]
  - Intentional product use issue [Unknown]
